FAERS Safety Report 12567141 (Version 3)
Quarter: 2016Q4

REPORT INFORMATION
  Report Type: Other
  Country: US (occurrence: US)
  Receive Date: 20160718
  Receipt Date: 20161004
  Transmission Date: 20170207
  Serious: Yes (Death)
  Sender: FDA-Public Use
  Company Number: US-VERTEX PHARMACEUTICALS-2016-004318

PATIENT
  Sex: Male

DRUGS (10)
  1. FLOVENT HFA [Suspect]
     Active Substance: FLUTICASONE PROPIONATE
     Indication: CYSTIC FIBROSIS
     Dosage: 110 ?G, BID
     Route: 055
     Dates: start: 20150128
  2. HUMALOG [Suspect]
     Active Substance: INSULIN LISPRO
     Indication: CYSTIC FIBROSIS
     Dosage: 100 UNITS/ML, TID
     Route: 058
     Dates: start: 20150128
  3. LINZESS [Suspect]
     Active Substance: LINACLOTIDE
     Indication: CYSTIC FIBROSIS
     Dosage: 145 ?G, QD
     Route: 048
     Dates: start: 20151214
  4. CAYSTON [Concomitant]
     Active Substance: AZTREONAM
  5. CREON [Suspect]
     Active Substance: PANCRELIPASE AMYLASE\PANCRELIPASE LIPASE\PANCRELIPASE PROTEASE
     Indication: CYSTIC FIBROSIS
     Dosage: 24000 IU, UNK
     Route: 048
     Dates: start: 20150128
  6. AMITIZA [Suspect]
     Active Substance: LUBIPROSTONE
     Indication: CYSTIC FIBROSIS
     Dosage: 24 ?G, BID
     Route: 048
     Dates: start: 20150925
  7. LANTUS [Suspect]
     Active Substance: INSULIN GLARGINE
     Indication: CYSTIC FIBROSIS
     Dosage: 100 UNITS/ML, QD
     Route: 058
     Dates: start: 20150418
  8. ORKAMBI [Suspect]
     Active Substance: IVACAFTOR\LUMACAFTOR
     Indication: CYSTIC FIBROSIS
     Dosage: 400 MG/250 MG, Q12H
     Route: 048
     Dates: start: 20151211, end: 2016
  9. MEPHYTON [Suspect]
     Active Substance: PHYTONADIONE
     Indication: CYSTIC FIBROSIS
     Dosage: 5 MG, UNK
     Route: 048
     Dates: start: 20151211
  10. PULMOZYME [Suspect]
     Active Substance: DORNASE ALFA
     Indication: CYSTIC FIBROSIS
     Dosage: 1 UNK, BID
     Route: 055
     Dates: start: 20150418

REACTIONS (1)
  - Death [Fatal]

NARRATIVE: CASE EVENT DATE: 2016
